FAERS Safety Report 9421925 (Version 1)
Quarter: 2013Q3

REPORT INFORMATION
  Report Type: Spontaneous
  Country: US (occurrence: US)
  Receive Date: 20130726
  Receipt Date: 20130726
  Transmission Date: 20140515
  Serious: No
  Sender: FDA-Public Use
  Company Number: US-PFIZER INC-2013218385

PATIENT
  Age: 74 Year
  Sex: Female

DRUGS (28)
  1. DAYPRO [Suspect]
     Dosage: UNK
  2. MORPHINE SULFATE [Suspect]
     Dosage: UNK
  3. AZITHROMYCIN [Suspect]
     Dosage: UNK
  4. CLINDAMYCIN HCL [Suspect]
     Dosage: UNK
  5. TETRACYCLINE HCL [Suspect]
     Dosage: UNK
  6. SEPTRA DS [Suspect]
     Dosage: UNK
  7. ACETYLSALICYLIC ACID [Suspect]
     Dosage: UNK
  8. BETADINE [Suspect]
     Dosage: UNK
  9. CEFTIN [Suspect]
     Dosage: UNK
  10. ELAVIL [Suspect]
     Dosage: UNK
  11. MACRODANTIN [Suspect]
     Dosage: UNK
  12. NOVOCAIN [Suspect]
     Dosage: UNK
  13. TOPROL XL [Suspect]
     Dosage: UNK
  14. ULTRAM [Suspect]
     Dosage: UNK
  15. ZOCOR [Suspect]
     Dosage: UNK
  16. RESTORIL [Suspect]
     Dosage: UNK
  17. CRESTOR [Suspect]
  18. DEMEROL (MEPERIDINE) [Suspect]
  19. FLONASE [Suspect]
  20. LESCOL XL [Suspect]
  21. NITRO [Suspect]
  22. ROZEREM [Suspect]
  23. TERCONAZOLE [Suspect]
  24. TRINALIN [Suspect]
  25. VICODIN [Suspect]
  26. ZETIA [Suspect]
  27. ZYRTEC [Suspect]
  28. VERAMYST [Suspect]

REACTIONS (1)
  - Drug hypersensitivity [Unknown]
